FAERS Safety Report 8783840 (Version 1)
Quarter: 2012Q4

REPORT INFORMATION
  Report Type: Spontaneous
  Country: US (occurrence: None)
  Receive Date: 20120829
  Receipt Date: 20120829
  Transmission Date: 20130627
  Serious: Yes (Other)
  Sender: FDA-Public Use
  Company Number: FK201202480

PATIENT
  Age: 61 Year
  Sex: Female

DRUGS (10)
  1. DOXORUBICIN [Suspect]
     Indication: DIFFUSE LARGE B-CELL LYMPHOMA REFRACTORY
  2. ETOPOSIDE [Suspect]
  3. METHOTREXATE [Suspect]
  4. BLEOMYCIN [Suspect]
  5. CYTARABINE [Suspect]
  6. CYCLOPHOSPHAMIDE [Suspect]
  7. VINCRISTINE [Suspect]
  8. PREDNISOLONE [Suspect]
  9. CARMUSTINE [Suspect]
  10. MELPHALAN (MELPHALAN) [Suspect]

REACTIONS (6)
  - Oral herpes [None]
  - Infection [None]
  - Mucosal inflammation [None]
  - Nausea [None]
  - Febrile neutropenia [None]
  - Dermatitis bullous [None]
